FAERS Safety Report 4478999-7 (Version None)
Quarter: 2004Q4

REPORT INFORMATION
  Report Type: 
  Country: None (occurrence: None)
  Receive Date: 20041015
  Receipt Date: 20041004
  Transmission Date: 20050328
  Serious: Yes (Death)
  Sender: FDA-Public Use
  Company Number: A01200404895

PATIENT
  Age: 82 Year
  Sex: Female

DRUGS (1)
  1. PLAVIX [Suspect]

REACTIONS (1)
  - INTERSTITIAL LUNG DISEASE [None]
